FAERS Safety Report 18181752 (Version 3)
Quarter: 2020Q3

REPORT INFORMATION
  Report Type: Spontaneous
  Country: CL (occurrence: CL)
  Receive Date: 20200821
  Receipt Date: 20200828
  Transmission Date: 20201103
  Serious: Yes (Hospitalization, Other)
  Sender: FDA-Public Use
  Company Number: CL-BIOMARINAP-CL-2020-131799

PATIENT
  Sex: Female

DRUGS (1)
  1. NAGLAZYME [Suspect]
     Active Substance: GALSULFASE
     Indication: MUCOPOLYSACCHARIDOSIS VI
     Dosage: UNK
     Route: 042
     Dates: start: 2007

REACTIONS (6)
  - Cerebral cyst [Unknown]
  - Headache [Unknown]
  - Abdominal pain [Unknown]
  - Shunt occlusion [Unknown]
  - Vomiting projectile [Unknown]
  - Respiratory tract oedema [Not Recovered/Not Resolved]

NARRATIVE: CASE EVENT DATE: 20200807
